FAERS Safety Report 9927549 (Version 1)
Quarter: 2014Q1

REPORT INFORMATION
  Report Type: Report from Study
  Country: CA (occurrence: CA)
  Receive Date: 20140227
  Receipt Date: 20140227
  Transmission Date: 20141002
  Serious: Yes (Other)
  Sender: FDA-Public Use
  Company Number: CA-ROCHE-1355377

PATIENT
  Age: 64 Year
  Sex: Female
  Weight: 74 kg

DRUGS (8)
  1. ACTEMRA [Suspect]
     Indication: RHEUMATOID ARTHRITIS
     Route: 042
     Dates: start: 20130604
  2. ACTEMRA [Suspect]
     Dosage: DOSE INCREASED
     Route: 065
  3. RITUXAN [Suspect]
     Indication: PRODUCT USED FOR UNKNOWN INDICATION
     Route: 065
  4. PRAVASTATIN [Concomitant]
  5. INSULINE [Concomitant]
  6. PANTOPRAZOLE [Concomitant]
  7. GABAPENTIN [Concomitant]
  8. RISEDRONATE [Concomitant]

REACTIONS (2)
  - Weight increased [Unknown]
  - Drug hypersensitivity [Unknown]
